FAERS Safety Report 6533392-8 (Version None)
Quarter: 2010Q1

REPORT INFORMATION
  Report Type: 
  Country: None (occurrence: None)
  Receive Date: 20100111
  Receipt Date: 20100104
  Transmission Date: 20100710
  Serious: Yes (Other)
  Sender: FDA-Public Use
  Company Number: US-AMGEN-KDL383404

PATIENT
  Sex: Male
  Weight: 88.5 kg

DRUGS (12)
  1. NPLATE [Suspect]
     Indication: IDIOPATHIC THROMBOCYTOPENIC PURPURA
     Dates: start: 20080901
  2. DIOVAN [Concomitant]
  3. AMLODIPINE [Concomitant]
  4. SLOW-MAG [Concomitant]
  5. PRAVASTATIN [Concomitant]
  6. NOVOLOG [Concomitant]
  7. LANTUS [Concomitant]
  8. CARVEDILOL [Concomitant]
  9. WINRHO [Concomitant]
  10. RITUXAN [Concomitant]
  11. VINCRISTINE [Concomitant]
  12. CORTICOSTEROIDS [Concomitant]
     Route: 048

REACTIONS (6)
  - HAEMOGLOBIN INCREASED [None]
  - INSOMNIA [None]
  - PARAESTHESIA [None]
  - PLATELET COUNT DECREASED [None]
  - RED BLOOD CELL COUNT INCREASED [None]
  - SLEEP APNOEA SYNDROME [None]
